FAERS Safety Report 14759853 (Version 1)
Quarter: 2018Q2

REPORT INFORMATION
  Report Type: Spontaneous
  Country: US (occurrence: US)
  Receive Date: 20180413
  Receipt Date: 20180413
  Transmission Date: 20180711
  Serious: No
  Sender: FDA-Public Use
  Company Number: US-MYLANLABS-2018M1019884

PATIENT
  Sex: Female
  Weight: 50.34 kg

DRUGS (4)
  1. LIDOCAINE PATCH [Suspect]
     Active Substance: LIDOCAINE
     Indication: NEUROPATHY PERIPHERAL
     Dosage: UNK
     Route: 062
  2. LIDOCAINE PATCH [Suspect]
     Active Substance: LIDOCAINE
     Indication: ARTHRITIS
     Dosage: UNK
     Route: 062
  3. LIDOCAINE PATCH [Suspect]
     Active Substance: LIDOCAINE
     Indication: FIBROMYALGIA
     Dosage: UNK
     Route: 062
  4. LIDOCAINE PATCH [Suspect]
     Active Substance: LIDOCAINE
     Indication: BACK PAIN
     Dosage: UNK
     Route: 062

REACTIONS (7)
  - Off label use [Not Recovered/Not Resolved]
  - Application site discomfort [Unknown]
  - Product adhesion issue [Unknown]
  - Product quality issue [Unknown]
  - Wrong technique in product usage process [Recovered/Resolved]
  - Drug ineffective [Not Recovered/Not Resolved]
  - Application site irritation [Not Recovered/Not Resolved]
